FAERS Safety Report 8494164-0 (Version None)
Quarter: 2012Q3

REPORT INFORMATION
  Report Type: 
  Country: None (occurrence: None)
  Receive Date: 20120709
  Receipt Date: 20120703
  Transmission Date: 20120928
  Serious: Yes (Death, Life-Threatening, Hospitalization, Other)
  Sender: FDA-Public Use
  Company Number: PHHO2011DE04793

PATIENT
  Sex: Male
  Weight: 120.1 kg

DRUGS (6)
  1. CARVEDILOL [Suspect]
     Indication: HYPERTENSION
     Dosage: 25 MG, QD
     Route: 048
     Dates: start: 20000101
  2. SPIRONOLACTONE [Suspect]
     Indication: HYPERTENSION
     Dosage: 25 MG, QD
     Route: 048
     Dates: start: 20070101
  3. SIMVASTATIN [Suspect]
     Indication: HYPERCHOLESTEROLAEMIA
     Dosage: 10 MG, QD
     Route: 048
     Dates: start: 20100101
  4. ALLOPURINOL [Suspect]
     Indication: GOUT
     Dosage: 100 MG, QD
     Route: 048
     Dates: start: 20050101
  5. LISINOPRIL [Suspect]
     Indication: HYPERTENSION
     Dosage: 20 MG, QD
     Route: 048
     Dates: start: 20090101
  6. NO TREATMENT RECEIVED [Suspect]
     Indication: GOUT
     Dosage: NO TREATMENT

REACTIONS (8)
  - ENDOCARDITIS STAPHYLOCOCCAL [None]
  - CARDIAC FAILURE [None]
  - PNEUMONIA [None]
  - GASTROENTERITIS CLOSTRIDIAL [None]
  - DEVICE RELATED INFECTION [None]
  - PLEURAL EFFUSION [None]
  - POLYNEUROPATHY [None]
  - SEPTIC SHOCK [None]
